FAERS Safety Report 15037899 (Version 1)
Quarter: 2018Q2

REPORT INFORMATION
  Report Type: Spontaneous
  Country: SK (occurrence: SK)
  Receive Date: 20180620
  Receipt Date: 20180620
  Transmission Date: 20180711
  Serious: Yes (Other)
  Sender: FDA-Public Use
  Company Number: SK-BAUSCH-BL-2018-016921

PATIENT
  Age: 30 Year
  Sex: Female

DRUGS (6)
  1. METHYLPREDNISOLONE. [Suspect]
     Active Substance: METHYLPREDNISOLONE
     Indication: PRODUCT USED FOR UNKNOWN INDICATION
     Route: 065
     Dates: start: 201410
  2. ATB (CEFUROXIME) [Suspect]
     Active Substance: CEFUROXIME
     Indication: PRODUCT USED FOR UNKNOWN INDICATION
     Route: 065
     Dates: start: 201410
  3. PREDNISONE. [Suspect]
     Active Substance: PREDNISONE
     Indication: PRODUCT USED FOR UNKNOWN INDICATION
     Dosage: IN JUNE AND JUL/2014
     Route: 065
     Dates: start: 2014
  4. 5-ASA [Suspect]
     Active Substance: MESALAMINE
     Indication: COLITIS ULCERATIVE
     Route: 061
     Dates: start: 201405
  5. MESALAZINE [Suspect]
     Active Substance: MESALAMINE
     Indication: COLITIS ULCERATIVE
     Route: 065
     Dates: start: 201405
  6. BUDESONIDE. [Suspect]
     Active Substance: BUDESONIDE
     Indication: COLITIS ULCERATIVE
     Route: 065
     Dates: start: 201405

REACTIONS (17)
  - Thrombocytopenia [Recovering/Resolving]
  - Iron deficiency [Recovering/Resolving]
  - Vomiting [Recovering/Resolving]
  - Weight gain poor [Recovering/Resolving]
  - Maternal exposure during pregnancy [None]
  - Hypoalbuminaemia [None]
  - Premature delivery [None]
  - Anaemia [Recovering/Resolving]
  - Pyrexia [Recovering/Resolving]
  - Caesarean section [None]
  - Colitis ulcerative [None]
  - Leukocytosis [None]
  - Abdominal pain [Recovering/Resolving]
  - Treatment noncompliance [None]
  - Diarrhoea [Recovering/Resolving]
  - Exposure during pregnancy [Recovered/Resolved]
  - General physical health deterioration [None]

NARRATIVE: CASE EVENT DATE: 201405
